FAERS Safety Report 4852053-4 (Version None)
Quarter: 2005Q4

REPORT INFORMATION
  Report Type: 
  Country: None (occurrence: None)
  Receive Date: 20051213
  Receipt Date: 20010126
  Transmission Date: 20060501
  Serious: Yes (Hospitalization)
  Sender: FDA-Public Use
  Company Number: ES-ROCHE-253500

PATIENT
  Age: 35 Year
  Sex: Male
  Weight: 60 kg

DRUGS (6)
  1. PEG-INTERFERON ALFA 2A (RO 25-8310) [Suspect]
     Route: 058
     Dates: start: 20001220, end: 20010116
  2. RIBAVIRIN [Suspect]
     Dosage: WITH FOOD.
     Route: 048
     Dates: start: 20001220, end: 20010116
  3. METHADONE [Concomitant]
     Dates: start: 19990615
  4. D4T [Concomitant]
     Dates: start: 19991215
  5. 3TC [Concomitant]
     Dates: start: 19991215
  6. EFAVIRENZ [Concomitant]
     Dates: start: 19991215

REACTIONS (7)
  - HAEMOGLOBIN DECREASED [None]
  - HEPATIC ENCEPHALOPATHY [None]
  - OESOPHAGEAL VARICES HAEMORRHAGE [None]
  - PNEUMOCOCCAL BACTERAEMIA [None]
  - THROMBOCYTOPENIA [None]
  - URINARY TRACT INFECTION [None]
  - URINARY TRACT INFECTION STAPHYLOCOCCAL [None]
